FAERS Safety Report 21647360 (Version 1)
Quarter: 2022Q4

REPORT INFORMATION
  Report Type: Report from Study
  Country: US (occurrence: US)
  Receive Date: 20221128
  Receipt Date: 20221128
  Transmission Date: 20230113
  Serious: No
  Sender: FDA-Public Use
  Company Number: US-ACADIA PHARMACEUTICALS INC.-ACA-2022-PIM-003823

PATIENT
  Age: 76 Year
  Sex: Male

DRUGS (13)
  1. NUPLAZID [Suspect]
     Active Substance: PIMAVANSERIN TARTRATE
     Indication: Parkinson^s disease psychosis
     Dosage: 34 MILLIGRAM, QD, NIGHTLY
     Route: 048
     Dates: start: 20221020, end: 20221021
  2. ATORVASTATIN [Concomitant]
     Active Substance: ATORVASTATIN
  3. BRIMONIDINE TARTRATE\TIMOLOL MALEATE [Concomitant]
     Active Substance: BRIMONIDINE TARTRATE\TIMOLOL MALEATE
  4. DORZOLAMIDE [Concomitant]
     Active Substance: DORZOLAMIDE
  5. FINASTERIDE [Concomitant]
     Active Substance: FINASTERIDE
  6. LATANOPROST [Concomitant]
     Active Substance: LATANOPROST
  7. METOPROLOL [Concomitant]
     Active Substance: METOPROLOL
  8. MIRABEGRON [Concomitant]
     Active Substance: MIRABEGRON
  9. POLYMYXIN B SULFATE [Concomitant]
     Active Substance: POLYMYXIN B SULFATE
  10. PREDNISOLONE [Concomitant]
     Active Substance: PREDNISOLONE
  11. RIVASTIGMINE [Concomitant]
     Active Substance: RIVASTIGMINE
  12. TAMSULOSIN [Concomitant]
     Active Substance: TAMSULOSIN
  13. TOBRAMYCIN [Concomitant]
     Active Substance: TOBRAMYCIN

REACTIONS (2)
  - Muscular weakness [Recovered/Resolved]
  - Balance disorder [Recovered/Resolved]

NARRATIVE: CASE EVENT DATE: 20221020
